FAERS Safety Report 7653741-7 (Version None)
Quarter: 2011Q3

REPORT INFORMATION
  Report Type: 
  Country: None (occurrence: None)
  Receive Date: 20110803
  Receipt Date: 20110727
  Transmission Date: 20111222
  Serious: Yes (Other)
  Sender: FDA-Public Use
  Company Number: US-GLAXOSMITHKLINE-A0932937A

PATIENT
  Age: 54 Year
  Sex: Female
  Weight: 67.7 kg

DRUGS (2)
  1. UNSPECIFIED MEDICATION [Concomitant]
  2. TYKERB [Suspect]
     Indication: BREAST CANCER
     Dosage: 1250MG PER DAY
     Route: 048
     Dates: start: 20110501, end: 20110623

REACTIONS (5)
  - SWELLING FACE [None]
  - ERYTHEMA [None]
  - RASH [None]
  - ANGIOEDEMA [None]
  - DYSPNOEA [None]
